FAERS Safety Report 12705075 (Version 1)
Quarter: 2016Q3

REPORT INFORMATION
  Report Type: Spontaneous
  Country: US (occurrence: US)
  Receive Date: 20160831
  Receipt Date: 20160831
  Transmission Date: 20161109
  Serious: Yes (Other)
  Sender: FDA-Public Use
  Company Number: US-BAXALTA-2016BLT006074

PATIENT
  Age: 5 Year
  Sex: Male

DRUGS (1)
  1. ADVATE [Suspect]
     Active Substance: ANTIHEMOPHILIC FACTOR, HUMAN RECOMBINANT
     Indication: FACTOR VIII DEFICIENCY
     Route: 065

REACTIONS (4)
  - Infection [Unknown]
  - Limb injury [Unknown]
  - Sepsis [Unknown]
  - Impaired healing [Unknown]

NARRATIVE: CASE EVENT DATE: 20160801
